FAERS Safety Report 11801248 (Version 2)
Quarter: 2016Q1

REPORT INFORMATION
  Report Type: Spontaneous
  Country: US (occurrence: US)
  Receive Date: 20151204
  Receipt Date: 20160204
  Transmission Date: 20160525
  Serious: No
  Sender: FDA-Public Use
  Company Number: US-PFIZER INC-2015427419

PATIENT
  Age: 55 Year
  Sex: Female
  Weight: 115 kg

DRUGS (11)
  1. BUTALBITAL, ACETAMINOPHEN, AND CAFFEINE [Concomitant]
     Active Substance: ACETAMINOPHEN\BUTALBITAL\CAFFEINE
     Dosage: UNK
  2. AMBIEN [Concomitant]
     Active Substance: ZOLPIDEM TARTRATE
     Dosage: UNK
  3. LYRICA [Suspect]
     Active Substance: PREGABALIN
     Indication: NEURALGIA
  4. BACLOFEN. [Concomitant]
     Active Substance: BACLOFEN
     Dosage: UNK
  5. LYRICA [Suspect]
     Active Substance: PREGABALIN
     Indication: NEUROPATHY PERIPHERAL
  6. OXYCODONE [Concomitant]
     Active Substance: OXYCODONE
     Dosage: UNK
  7. KEPPRA [Concomitant]
     Active Substance: LEVETIRACETAM
     Dosage: UNK
  8. FENTANYL. [Concomitant]
     Active Substance: FENTANYL
     Dosage: UNK
  9. ASPIRIN. [Concomitant]
     Active Substance: ASPIRIN
     Dosage: UNK
  10. LYRICA [Suspect]
     Active Substance: PREGABALIN
     Indication: SPINA BIFIDA
     Dosage: 200 MG, 3X/DAY
     Route: 048
     Dates: start: 1998
  11. MIRALAX [Concomitant]
     Active Substance: POLYETHYLENE GLYCOL 3350
     Dosage: UNK

REACTIONS (1)
  - Malaise [Unknown]
